FAERS Safety Report 6504223-7 (Version None)
Quarter: 2009Q4

REPORT INFORMATION
  Report Type: 
  Country: None (occurrence: None)
  Receive Date: 20091217
  Receipt Date: 20091211
  Transmission Date: 20100525
  Serious: No
  Sender: FDA-Public Use
  Company Number: US-B.I. PHARMACEUTICALS,INC./RIDGEFIELD-2009-BP-13653BP

PATIENT
  Age: 80 Year
  Sex: Female
  Weight: 55.3 kg

DRUGS (4)
  1. SPIRIVA [Suspect]
     Indication: CHRONIC OBSTRUCTIVE PULMONARY DISEASE
     Dosage: 18 MCG
     Route: 055
     Dates: start: 20090811, end: 20091022
  2. TOPROL-XL [Concomitant]
     Dosage: 50 MG
  3. ALPRAZOLAM [Concomitant]
     Dosage: 0.5 MG
  4. FAMOTIDINE [Concomitant]
     Dosage: 40 MG

REACTIONS (2)
  - CONSTIPATION [None]
  - PULMONARY FUNCTION TEST DECREASED [None]
